FAERS Safety Report 6944046-8 (Version None)
Quarter: 2010Q3

REPORT INFORMATION
  Report Type: 
  Country: None (occurrence: None)
  Receive Date: 20100827
  Receipt Date: 20100823
  Transmission Date: 20110219
  Serious: Yes (Hospitalization)
  Sender: FDA-Public Use
  Company Number: US-BIOGENIDEC-2010BI026755

PATIENT
  Age: 67 Year
  Sex: Female

DRUGS (1)
  1. AVONEX [Suspect]
     Indication: MULTIPLE SCLEROSIS
     Route: 030
     Dates: start: 19961101

REACTIONS (5)
  - JOINT STIFFNESS [None]
  - MULTIPLE SCLEROSIS [None]
  - MUSCULAR WEAKNESS [None]
  - OSTEOARTHRITIS [None]
  - PAIN [None]
